FAERS Safety Report 7267878-8 (Version None)
Quarter: 2011Q1

REPORT INFORMATION
  Report Type: 
  Country: None (occurrence: None)
  Receive Date: 20110201
  Receipt Date: 20110118
  Transmission Date: 20110831
  Serious: Yes (Other)
  Sender: FDA-Public Use
  Company Number: US-ROCHE-755722

PATIENT
  Sex: Male

DRUGS (1)
  1. AVASTIN [Suspect]
     Dosage: INJECTION
     Route: 031
     Dates: start: 20101217, end: 20101220

REACTIONS (1)
  - VISION BLURRED [None]
